FAERS Safety Report 9548582 (Version 2)
Quarter: 2013Q3

REPORT INFORMATION
  Report Type: Spontaneous
  Country: US (occurrence: US)
  Receive Date: 20130924
  Receipt Date: 20130924
  Transmission Date: 20140515
  Serious: No
  Sender: FDA-Public Use
  Company Number: US-009507513-1005USA00386

PATIENT
  Age: 23 Year
  Sex: Female

DRUGS (6)
  1. ISENTRESS [Suspect]
     Indication: HIV INFECTION
     Dosage: 800 MG, QD
     Route: 048
     Dates: start: 20091114
  2. COMBIVIR [Suspect]
     Indication: HIV INFECTION
     Dosage: 2 UNK, UNK
     Route: 048
     Dates: start: 20090628, end: 20091113
  3. VIRAMUNE [Suspect]
     Indication: HIV INFECTION
     Dosage: 400 MG, QD
     Route: 048
     Dates: start: 20090628, end: 20090712
  4. KALETRA [Suspect]
     Indication: HIV INFECTION
     Dosage: 4MG, UNK
     Route: 048
     Dates: start: 20090720, end: 20091008
  5. KALETRA [Suspect]
     Dosage: UNK UNK, QD
     Route: 048
     Dates: start: 20091008
  6. VIREAD [Suspect]
     Indication: HIV INFECTION
     Dosage: 300 MG, QD
     Route: 048
     Dates: start: 20091113

REACTIONS (1)
  - Exposure during pregnancy [Recovered/Resolved]
